FAERS Safety Report 10157412 (Version 1)
Quarter: 2014Q2

REPORT INFORMATION
  Report Type: Spontaneous
  Country: US (occurrence: US)
  Receive Date: 20140507
  Receipt Date: 20140507
  Transmission Date: 20141212
  Serious: Yes (Other)
  Sender: FDA-Public Use
  Company Number: US-JNJFOC-20140500106

PATIENT
  Sex: Male
  Weight: 108 kg

DRUGS (12)
  1. SANDOZ FENTANYL TRANSDERMAL SYSTEM [Suspect]
     Indication: PAIN
     Route: 062
  2. SANDOZ FENTANYL TRANSDERMAL SYSTEM [Suspect]
     Indication: PAIN
     Route: 062
  3. SANDOZ FENTANYL TRANSDERMAL SYSTEM [Suspect]
     Indication: PAIN
     Route: 062
     Dates: start: 2014
  4. OXYCONTIN [Suspect]
     Indication: PRODUCT USED FOR UNKNOWN INDICATION
     Route: 065
  5. TERAZOSIN [Concomitant]
     Indication: BLADDER PAIN
     Route: 048
  6. TERAZOSIN [Concomitant]
     Indication: BLOOD PRESSURE
     Route: 048
  7. ISOSORBIDE MONONITRATE [Concomitant]
     Indication: CARDIAC DISORDER
     Route: 048
  8. ATENOLOL [Concomitant]
     Route: 048
  9. GLIPIZIDE [Concomitant]
     Indication: DIABETES MELLITUS
     Route: 048
  10. FUROSEMIDE [Concomitant]
     Indication: DIABETES MELLITUS
     Dosage: 2 IN MORNING 1 AT NIGHT
     Route: 048
  11. DIA-VITE [Concomitant]
     Indication: DIALYSIS
     Route: 048
     Dates: start: 2013
  12. OMEPRAZOLE [Concomitant]
     Indication: DYSPEPSIA
     Route: 048

REACTIONS (9)
  - Dialysis [Not Recovered/Not Resolved]
  - Drug ineffective [Not Recovered/Not Resolved]
  - Herpes zoster [Not Recovered/Not Resolved]
  - Drug withdrawal syndrome [Unknown]
  - Respiratory disorder [Not Recovered/Not Resolved]
  - Diarrhoea [Unknown]
  - Vomiting [Unknown]
  - Product quality issue [Unknown]
  - Product quality issue [Unknown]
